FAERS Safety Report 25921738 (Version 1)
Quarter: 2025Q4

REPORT INFORMATION
  Report Type: Spontaneous
  Country: US (occurrence: US)
  Receive Date: 20251014
  Receipt Date: 20251014
  Transmission Date: 20260117
  Serious: No
  Sender: AMGEN
  Company Number: US-AMGEN-USASP2025201470

PATIENT
  Age: 64 Year
  Sex: Male

DRUGS (1)
  1. REPATHA [Suspect]
     Active Substance: EVOLOCUMAB
     Indication: Blood cholesterol increased
     Dosage: 140 MILLIGRAM, Q2WK
     Route: 065
     Dates: end: 20250801

REACTIONS (7)
  - Injection site swelling [Unknown]
  - Injection site pruritus [Unknown]
  - Injection site irritation [Unknown]
  - Injection site pain [Unknown]
  - Accidental exposure to product [Unknown]
  - Wrong technique in device usage process [Unknown]
  - Incorrect disposal of product [Unknown]

NARRATIVE: CASE EVENT DATE: 20250801
